FAERS Safety Report 6928348-7 (Version None)
Quarter: 2010Q3

REPORT INFORMATION
  Report Type: 
  Country: None (occurrence: None)
  Receive Date: 20100817
  Receipt Date: 20100809
  Transmission Date: 20110219
  Serious: Yes (Hospitalization)
  Sender: FDA-Public Use
  Company Number: US-AMGEN-KDC429959

PATIENT
  Sex: Male
  Weight: 71.3 kg

DRUGS (18)
  1. PANITUMUMAB [Suspect]
     Indication: COLORECTAL CANCER
     Dates: start: 20100513, end: 20100624
  2. DECITABINE [Suspect]
     Indication: COLORECTAL CANCER
     Dates: start: 20100605, end: 20100617
  3. CYCLOBENZAPRINE [Concomitant]
     Route: 048
  4. DICYCLOMINE HYDROCHLORIDE [Concomitant]
     Route: 048
  5. DOCUSATE SODIUM [Concomitant]
     Route: 048
  6. DOXYCYCLINE [Concomitant]
     Route: 048
  7. EMLA [Concomitant]
     Route: 061
  8. LEXAPRO [Concomitant]
     Route: 048
  9. LOVENOX [Concomitant]
     Route: 058
     Dates: start: 20100628
  10. LUNESTA [Concomitant]
     Route: 048
  11. MIRALAX [Concomitant]
     Route: 048
  12. NEXIUM [Concomitant]
     Route: 048
  13. OXYCODONE [Concomitant]
     Route: 048
  14. OXYCONTIN [Concomitant]
     Route: 048
  15. RITALIN [Concomitant]
     Route: 048
  16. COUMADIN [Concomitant]
  17. ARANESP [Concomitant]
  18. IRON [Concomitant]
     Route: 042

REACTIONS (3)
  - ANAEMIA [None]
  - DEEP VEIN THROMBOSIS [None]
  - MALIGNANT PLEURAL EFFUSION [None]
